FAERS Safety Report 15751536 (Version 1)
Quarter: 2018Q4

REPORT INFORMATION
  Report Type: Spontaneous
  Country: PT (occurrence: PT)
  Receive Date: 20181221
  Receipt Date: 20181221
  Transmission Date: 20190205
  Serious: Yes (Other)
  Sender: FDA-Public Use
  Company Number: PT-PFIZER INC-18925

PATIENT
  Age: 42 Year
  Sex: Female

DRUGS (5)
  1. DEXAMETHASONE. [Concomitant]
     Active Substance: DEXAMETHASONE
     Dosage: UNK
     Route: 042
     Dates: start: 20080312, end: 20080312
  2. RANITIDINE. [Concomitant]
     Active Substance: RANITIDINE
     Dosage: 1 DF, 1X/DAY
     Route: 042
     Dates: start: 20080312, end: 20080312
  3. PACLITAXEL HOSPIRA [Suspect]
     Active Substance: PACLITAXEL
     Dosage: UNK
     Route: 042
     Dates: start: 20080312
  4. TAVIST [CLEMASTINE FUMARATE] [Concomitant]
     Dosage: 1 DF, 1X/DAY
     Route: 042
     Dates: start: 20080312
  5. ZOFRAN [ONDANSETRON HYDROCHLORIDE] [Concomitant]
     Dosage: 6 MG, 1X/DAY
     Route: 042
     Dates: start: 20080312

REACTIONS (1)
  - Feeling hot [Recovered/Resolved]

NARRATIVE: CASE EVENT DATE: 20080312
